FAERS Safety Report 16197720 (Version 1)
Quarter: 2019Q2

REPORT INFORMATION
  Report Type: Spontaneous
  Country: US (occurrence: US)
  Receive Date: 20190414
  Receipt Date: 20190414
  Transmission Date: 20190711
  Serious: Yes (Other)
  Sender: FDA-Public Use
  Company Number: None

PATIENT
  Age: 74 Year
  Sex: Female
  Weight: 95 kg

DRUGS (1)
  1. LEVOFLOXACIN. [Suspect]
     Active Substance: LEVOFLOXACIN
     Indication: URINARY TRACT INFECTION
     Dosage: ?          OTHER FREQUENCY:X1;?
     Route: 041
     Dates: start: 20190414, end: 20190414

REACTIONS (3)
  - Tachypnoea [None]
  - Infusion related reaction [None]
  - Respiratory rate increased [None]

NARRATIVE: CASE EVENT DATE: 20190414
